FAERS Safety Report 21246844 (Version 1)
Quarter: 2022Q3

REPORT INFORMATION
  Report Type: Other
  Country: US (occurrence: None)
  Receive Date: 20220824
  Receipt Date: 20220824
  Transmission Date: 20221026
  Serious: Yes (Hospitalization, Other)
  Sender: FDA-Public Use
  Company Number: US-ROCHE-2304761

PATIENT
  Age: 53 Year
  Sex: Male
  Weight: 74.456 kg

DRUGS (20)
  1. OCREVUS [Suspect]
     Active Substance: OCRELIZUMAB
     Indication: Relapsing multiple sclerosis
     Dosage: THEN 600 MG EVERY 6 MONTHS?DOT: 17/OCT/2017, 10/APR/2018, 09/MAY/2019, 10/OCT/2019, 20/NOV/2019, 07/
     Route: 042
     Dates: start: 201710
  2. AMANTADINE HYDROCHLORIDE [Concomitant]
     Active Substance: AMANTADINE HYDROCHLORIDE
  3. APIXABAN [Concomitant]
     Active Substance: APIXABAN
  4. BACLOFEN [Concomitant]
     Active Substance: BACLOFEN
  5. ASPIRIN [Concomitant]
     Active Substance: ASPIRIN
  6. BUPROPION [Concomitant]
     Active Substance: BUPROPION
  7. CHOLECALCIFEROL [Concomitant]
     Active Substance: CHOLECALCIFEROL
  8. FENOFIBRATE [Concomitant]
     Active Substance: FENOFIBRATE
  9. LISINOPRIL [Concomitant]
     Active Substance: LISINOPRIL
  10. EZETIMIBE [Concomitant]
     Active Substance: EZETIMIBE
  11. LORAZEPAM [Concomitant]
     Active Substance: LORAZEPAM
  12. MELATONIN [Concomitant]
     Active Substance: MELATONIN
  13. METOPROLOL TARTRATE [Concomitant]
     Active Substance: METOPROLOL TARTRATE
  14. METOPROLOL SUCCINATE [Concomitant]
     Active Substance: METOPROLOL SUCCINATE
  15. FENOBIBRATE [Concomitant]
     Active Substance: FENOFIBRATE
  16. ZETIA [Concomitant]
     Active Substance: EZETIMIBE
  17. ELIQUIS [Concomitant]
     Active Substance: APIXABAN
  18. TYSABRI [Concomitant]
     Active Substance: NATALIZUMAB
  19. WELLBUTRIN SR [Concomitant]
     Active Substance: BUPROPION HYDROCHLORIDE
  20. FISH OIL [Concomitant]
     Active Substance: FISH OIL

REACTIONS (12)
  - Intracardiac thrombus [Unknown]
  - Muscle spasms [Not Recovered/Not Resolved]
  - Fatigue [Not Recovered/Not Resolved]
  - Hypoaesthesia [Not Recovered/Not Resolved]
  - Dizziness [Unknown]
  - Chills [Not Recovered/Not Resolved]
  - Feeling hot [Not Recovered/Not Resolved]
  - Urinary tract infection [Recovered/Resolved]
  - Depression [Unknown]
  - Flank pain [Unknown]
  - Nausea [Recovered/Resolved]
  - Cardiac ventricular thrombosis [Recovered/Resolved]

NARRATIVE: CASE EVENT DATE: 20171001
